FAERS Safety Report 4484960-9 (Version None)
Quarter: 2004Q3

REPORT INFORMATION
  Report Type: 
  Country: None (occurrence: None)
  Receive Date: 20040921
  Receipt Date: 20030925
  Transmission Date: 20050211
  Serious: Yes (Other)
  Sender: FDA-Public Use
  Company Number: 163-20785-03070359

PATIENT
  Age: 75 Year
  Sex: Male

DRUGS (6)
  1. THALOMID [Suspect]
     Indication: PROSTATE CANCER
     Dosage: 400 MG, DAILY, ORAL
     Route: 048
     Dates: start: 20021123, end: 20030101
  2. TAXOTERE [Concomitant]
  3. EMCYT [Concomitant]
  4. ZOMETA [Concomitant]
  5. CASODEX [Concomitant]
  6. LUPRON DEPOT [Concomitant]

REACTIONS (2)
  - DYSPNOEA [None]
  - NEUROPATHY PERIPHERAL [None]
